FAERS Safety Report 9889472 (Version 2)
Quarter: 2014Q1

REPORT INFORMATION
  Report Type: Spontaneous
  Country: DE (occurrence: DE)
  Receive Date: 20140211
  Receipt Date: 20140324
  Transmission Date: 20141002
  Serious: Yes (Other)
  Sender: FDA-Public Use
  Company Number: DE-GILEAD-2014-0094149

PATIENT
  Age: 48 Year
  Sex: Male

DRUGS (3)
  1. VIREAD [Suspect]
     Indication: HEPATITIS B
     Dosage: UNK MG, UNK
     Route: 065
     Dates: end: 201211
  2. VIREAD [Suspect]
     Dosage: 245 MG, UNK
     Route: 048
     Dates: start: 201311
  3. BARACLUDE [Concomitant]
     Indication: HEPATITIS B
     Dosage: 1 MG, UNK
     Route: 048
     Dates: start: 201211

REACTIONS (4)
  - Hepatitis B DNA increased [Not Recovered/Not Resolved]
  - Pathogen resistance [Not Recovered/Not Resolved]
  - Drug ineffective [Not Recovered/Not Resolved]
  - No therapeutic response [Unknown]
